FAERS Safety Report 13666357 (Version 1)
Quarter: 2017Q2

REPORT INFORMATION
  Report Type: Spontaneous
  Country: US (occurrence: US)
  Receive Date: 20170619
  Receipt Date: 20170619
  Transmission Date: 20170830
  Serious: No
  Sender: FDA-Public Use
  Company Number: US-ROCHE-1393668

PATIENT
  Sex: Female

DRUGS (6)
  1. 5-FU [Suspect]
     Active Substance: FLUOROURACIL
     Indication: COLON CANCER METASTATIC
     Route: 042
  2. XELODA [Suspect]
     Active Substance: CAPECITABINE
     Indication: COLON CANCER METASTATIC
     Dosage: 7 DAYS ON; 7 DAYS OFF?3 TABLETS
     Route: 048
  3. PANTOPRAZOLE [Concomitant]
     Active Substance: PANTOPRAZOLE
     Indication: GASTROOESOPHAGEAL REFLUX DISEASE
  4. PREDNISONE. [Concomitant]
     Active Substance: PREDNISONE
     Indication: LIVER DISORDER
     Route: 048
  5. FOLINIC ACID [Suspect]
     Active Substance: LEUCOVORIN
     Indication: COLON CANCER METASTATIC
     Route: 042
  6. OXALIPLATIN. [Suspect]
     Active Substance: OXALIPLATIN
     Indication: COLON CANCER METASTATIC
     Route: 042

REACTIONS (3)
  - Palmar-plantar erythrodysaesthesia syndrome [Recovering/Resolving]
  - Hypertension [Not Recovered/Not Resolved]
  - Fall [Unknown]
